FAERS Safety Report 25170503 (Version 1)
Quarter: 2025Q2

REPORT INFORMATION
  Report Type: Spontaneous
  Country: US (occurrence: US)
  Receive Date: 20250408
  Receipt Date: 20250408
  Transmission Date: 20250716
  Serious: No
  Sender: AMGEN
  Company Number: US-AMGEN-USASP2025065501

PATIENT
  Age: 66 Year
  Sex: Female

DRUGS (3)
  1. REPATHA [Suspect]
     Active Substance: EVOLOCUMAB
     Indication: Blood cholesterol increased
     Route: 065
  2. AMLODIPINE [Concomitant]
     Active Substance: AMLODIPINE BESYLATE
     Indication: Product used for unknown indication
     Route: 065
  3. LOSARTAN [Concomitant]
     Active Substance: LOSARTAN
     Route: 065

REACTIONS (10)
  - Rhinorrhoea [Unknown]
  - Vertigo [Unknown]
  - Nasal congestion [Unknown]
  - Balance disorder [Unknown]
  - Middle ear effusion [Unknown]
  - Fear [Unknown]
  - Upper-airway cough syndrome [Unknown]
  - Dizziness [Unknown]
  - Throat irritation [Recovered/Resolved]
  - Muscular weakness [Unknown]
